FAERS Safety Report 8489521-2 (Version None)
Quarter: 2012Q3

REPORT INFORMATION
  Report Type: 
  Country: None (occurrence: None)
  Receive Date: 20120705
  Receipt Date: 20120625
  Transmission Date: 20120928
  Serious: Yes (Hospitalization)
  Sender: FDA-Public Use
  Company Number: US-ASTRAZENECA-2012SE42732

PATIENT
  Age: 28991 Day
  Sex: Female
  Weight: 60.3 kg

DRUGS (8)
  1. PULMICORT FLEXHALER [Suspect]
     Indication: CHRONIC OBSTRUCTIVE PULMONARY DISEASE
     Dosage: 2 PUFFS BID
     Route: 055
     Dates: end: 20120618
  2. PULMICORT FLEXHALER [Suspect]
     Indication: ASTHMA
     Dosage: 2 PUFFS BID
     Route: 055
     Dates: end: 20120618
  3. ACIPHEX [Concomitant]
     Indication: GASTROOESOPHAGEAL REFLUX DISEASE
     Route: 048
  4. DIOVAN [Concomitant]
     Indication: BLOOD PRESSURE ABNORMAL
     Route: 048
  5. AMITRIPTYLINE HCL [Concomitant]
     Indication: FIBROMYALGIA
     Route: 048
  6. CELEBREX [Concomitant]
     Indication: FIBROMYALGIA
     Route: 048
  7. VYTORIN [Concomitant]
     Route: 048
  8. CELEBREX [Concomitant]
     Indication: RHEUMATOID ARTHRITIS
     Route: 048

REACTIONS (5)
  - DRUG INEFFECTIVE [None]
  - RESPIRATORY TRACT INFECTION [None]
  - WEIGHT DECREASED [None]
  - COUGH [None]
  - CHRONIC OBSTRUCTIVE PULMONARY DISEASE [None]
